FAERS Safety Report 12686338 (Version 2)
Quarter: 2016Q3

REPORT INFORMATION
  Report Type: Spontaneous
  Country: US (occurrence: US)
  Receive Date: 20160825
  Receipt Date: 20160912
  Transmission Date: 20161109
  Serious: No
  Sender: FDA-Public Use
  Company Number: US-JAZZ-2016-US-006908

PATIENT
  Sex: Female

DRUGS (22)
  1. IBUPROFEN. [Concomitant]
     Active Substance: IBUPROFEN
  2. NEXIUM [Concomitant]
     Active Substance: ESOMEPRAZOLE MAGNESIUM
  3. NUVIGIL [Concomitant]
     Active Substance: ARMODAFINIL
  4. CITRACAL + D [Concomitant]
     Active Substance: CALCIUM CITRATE\VITAMIN D
  5. VITAMIN D3 [Concomitant]
     Active Substance: CHOLECALCIFEROL
  6. XANAX [Concomitant]
     Active Substance: ALPRAZOLAM
  7. PANTOPRAZOLE [Concomitant]
     Active Substance: PANTOPRAZOLE SODIUM
  8. BIOTIN [Concomitant]
     Active Substance: BIOTIN
  9. XYREM [Suspect]
     Active Substance: SODIUM OXYBATE
     Indication: NARCOLEPSY
     Dosage: 2.25 G, BID
     Route: 048
     Dates: start: 200910, end: 200910
  10. XYREM [Suspect]
     Active Substance: SODIUM OXYBATE
     Dosage: DOSE ADJUSTMENTS
     Route: 048
  11. CELEBREX [Concomitant]
     Active Substance: CELECOXIB
  12. CITALOPRAM [Concomitant]
     Active Substance: CITALOPRAM HYDROBROMIDE
  13. XYREM [Suspect]
     Active Substance: SODIUM OXYBATE
     Dosage: 4.5 G, BID
     Route: 048
     Dates: start: 200911
  14. ATELVIA [Concomitant]
     Active Substance: RISEDRONATE SODIUM
  15. PRAVASTATIN. [Concomitant]
     Active Substance: PRAVASTATIN
  16. BONIVA [Concomitant]
     Active Substance: IBANDRONATE SODIUM
  17. CITALOPRAM [Concomitant]
     Active Substance: CITALOPRAM HYDROBROMIDE
  18. COENZYME Q10 [Concomitant]
     Active Substance: UBIDECARENONE
  19. HYDROCHLOROTHIAZIDE. [Concomitant]
     Active Substance: HYDROCHLOROTHIAZIDE
  20. TYLENOL [Concomitant]
     Active Substance: ACETAMINOPHEN
  21. ZETIA [Concomitant]
     Active Substance: EZETIMIBE
  22. PROVIGIL [Concomitant]
     Active Substance: MODAFINIL

REACTIONS (2)
  - Incorrect dose administered [Unknown]
  - Unevaluable event [Unknown]
